FAERS Safety Report 9198969 (Version 1)
Quarter: 2013Q1

REPORT INFORMATION
  Report Type: Spontaneous
  Country: IN (occurrence: None)
  Receive Date: 20130326
  Receipt Date: 20130326
  Transmission Date: 20140127
  Serious: Yes (Other)
  Sender: FDA-Public Use
  Company Number: 2013-04729

PATIENT
  Age: 47 Year
  Sex: Female

DRUGS (4)
  1. ZOLPIDEM TARTRATE [Suspect]
     Indication: INSOMNIA
  2. CLONAZEPAM [Suspect]
     Indication: INSOMNIA
  3. LORAZEPAM [Suspect]
     Indication: INSOMNIA
  4. ALPRAZOLAM [Suspect]
     Indication: INSOMNIA

REACTIONS (6)
  - Drug abuse [None]
  - Intentional drug misuse [None]
  - Treatment noncompliance [None]
  - Incorrect dose administered [None]
  - Drug effect decreased [None]
  - Borderline personality disorder [None]
